FAERS Safety Report 5844821-7 (Version None)
Quarter: 2008Q3

REPORT INFORMATION
  Report Type: 
  Country: None (occurrence: None)
  Receive Date: 20080814
  Receipt Date: 20080811
  Transmission Date: 20090109
  Serious: Yes (Hospitalization)
  Sender: FDA-Public Use
  Company Number: JP-BRISTOL-MYERS SQUIBB COMPANY-14182018

PATIENT
  Age: 62 Year
  Sex: Female

DRUGS (6)
  1. TAXOL [Suspect]
     Indication: BREAST CANCER
     Route: 042
     Dates: start: 20080219
  2. AVASTIN [Suspect]
     Indication: BREAST CANCER
     Dosage: STARTED ON: 19-FEB-2008(DAY 1 ,1ST COURSE)
     Route: 042
     Dates: start: 20080219, end: 20080418
  3. LOXOPROFEN SODIUM [Suspect]
     Indication: CHEST PAIN
     Dosage: 1 DOSAGE FORM=120-180MG/DAY
     Route: 048
     Dates: start: 20080418, end: 20080429
  4. REBAMIPIDE [Concomitant]
     Dates: start: 20080418, end: 20080429
  5. PROCHLORPERAZINE MALEATE [Concomitant]
     Dates: start: 20080418, end: 20080424
  6. RAMOSETRON HCL [Concomitant]
     Dates: start: 20080425, end: 20080429

REACTIONS (1)
  - GASTRIC ULCER HAEMORRHAGE [None]
